FAERS Safety Report 4519535-6 (Version None)
Quarter: 2004Q4

REPORT INFORMATION
  Report Type: 
  Country: None (occurrence: None)
  Receive Date: 20041202
  Receipt Date: 20041123
  Transmission Date: 20050328
  Serious: Yes (Disabling)
  Sender: FDA-Public Use
  Company Number: CIP04002533

PATIENT
  Age: 48 Year
  Sex: Female

DRUGS (3)
  1. ACTONEL [Suspect]
     Indication: OSTEOPENIA
     Dosage: 35 MG ONCE WEEKLY, ORAL
     Route: 048
     Dates: start: 20040918
  2. CALCLIUM CARBONATE (CALCIUM CARBONATE) [Concomitant]
  3. BUPROPION (BUPROPION) [Concomitant]

REACTIONS (3)
  - DIFFICULTY IN WALKING [None]
  - MUSCLE RUPTURE [None]
  - PAIN IN EXTREMITY [None]
